FAERS Safety Report 9998967 (Version 1)
Quarter: 2014Q1

REPORT INFORMATION
  Report Type: Spontaneous
  Country: US (occurrence: US)
  Receive Date: 20140312
  Receipt Date: 20140312
  Transmission Date: 20141002
  Serious: No
  Sender: FDA-Public Use
  Company Number: US-009507513-1403USA003130

PATIENT
  Sex: Female

DRUGS (1)
  1. JANUMET [Suspect]
     Dosage: A TABLET, 50MG/1000MG
     Route: 048
     Dates: start: 20140304

REACTIONS (4)
  - Hypoaesthesia oral [Unknown]
  - Tongue coated [Unknown]
  - Ageusia [Unknown]
  - Paraesthesia oral [Unknown]
